FAERS Safety Report 16727312 (Version 2)
Quarter: 2020Q4

REPORT INFORMATION
  Report Type: Spontaneous
  Country: US (occurrence: US)
  Receive Date: 20190822
  Receipt Date: 20201123
  Transmission Date: 20210113
  Serious: No
  Sender: FDA-Public Use
  Company Number: US-SA-2019SA228855

PATIENT

DRUGS (2)
  1. DUPIXENT [Suspect]
     Active Substance: DUPILUMAB
     Dosage: 300 MG, QOW
     Route: 058
     Dates: start: 20200723
  2. DUPIXENT [Suspect]
     Active Substance: DUPILUMAB
     Indication: ATOPY
     Dosage: 300 MG, QOW
     Route: 058

REACTIONS (4)
  - Skin irritation [Unknown]
  - Alopecia [Unknown]
  - Product dose omission issue [Unknown]
  - Rash [Unknown]

NARRATIVE: CASE EVENT DATE: 20201021
